FAERS Safety Report 4731487-2 (Version None)
Quarter: 2005Q3

REPORT INFORMATION
  Report Type: 
  Country: None (occurrence: None)
  Receive Date: 20050802
  Receipt Date: 20050727
  Transmission Date: 20060218
  Serious: Yes (Hospitalization, Disabling, Other)
  Sender: FDA-Public Use
  Company Number: US-MERCK-0507USA04261

PATIENT
  Age: 75 Year
  Sex: Male

DRUGS (2)
  1. VIOXX [Suspect]
     Indication: OSTEOARTHRITIS
     Route: 048
     Dates: start: 19990611, end: 20001213
  2. VIOXX [Suspect]
     Route: 048
     Dates: start: 20040113, end: 20040930

REACTIONS (2)
  - CARDIAC DISORDER [None]
  - ISCHAEMIC STROKE [None]
